FAERS Safety Report 8748669 (Version 2)
Quarter: 2012Q4

REPORT INFORMATION
  Report Type: 
  Country: FR (occurrence: FR)
  Receive Date: 20120827
  Receipt Date: 20121103
  Transmission Date: 20130627
  Serious: Yes (Hospitalization)
  Sender: FDA-Public Use
  Company Number: FR-VERTEX PHARMACEUTICAL INC.-000000000000001258

PATIENT
  Age: 65 Year
  Sex: Female
  Weight: 65 kg

DRUGS (3)
  1. INCIVO [Suspect]
     Indication: CHRONIC HEPATITIS C
     Dosage: Dosage Form: Tablet
     Route: 048
     Dates: start: 20120601, end: 20120715
  2. PEGASYS [Suspect]
     Indication: CHRONIC HEPATITIS C
     Dosage: Dosage Form: Injection
     Route: 058
     Dates: start: 20120601, end: 20120717
  3. COPEGUS [Suspect]
     Indication: CHRONIC HEPATITIS C
     Dosage: Dosage Form: Tablets
     Route: 048
     Dates: start: 20120601, end: 20120717

REACTIONS (6)
  - Purpura [Recovered/Resolved]
  - Mucosal ulceration [Recovered/Resolved]
  - Toxic skin eruption [Not Recovered/Not Resolved]
  - Rash maculo-papular [Recovered/Resolved]
  - Rash erythematous [None]
  - Pruritus [None]
